FAERS Safety Report 13243681 (Version 1)
Quarter: 2017Q1

REPORT INFORMATION
  Report Type: Spontaneous
  Country: FR (occurrence: FR)
  Receive Date: 20170217
  Receipt Date: 20170217
  Transmission Date: 20170428
  Serious: Yes (Life-Threatening, Hospitalization)
  Sender: FDA-Public Use
  Company Number: PHHY2017FR024403

PATIENT
  Sex: Female

DRUGS (5)
  1. LAMICTAL [Suspect]
     Active Substance: LAMOTRIGINE
     Indication: EPILEPSY
     Dosage: 250 MG, QD
     Route: 048
     Dates: start: 2010, end: 2013
  2. VIMPAT [Suspect]
     Active Substance: LACOSAMIDE
     Dosage: 100 MG, BID
     Route: 048
     Dates: start: 201403
  3. VIMPAT [Suspect]
     Active Substance: LACOSAMIDE
     Indication: EPILEPSY
     Dosage: 100 MG, BID
     Route: 048
     Dates: start: 2012, end: 2013
  4. LAMICTAL [Suspect]
     Active Substance: LAMOTRIGINE
     Dosage: 250 MG, QD
     Route: 048
     Dates: start: 201404
  5. TRILEPTAL [Suspect]
     Active Substance: OXCARBAZEPINE
     Indication: EPILEPSY
     Dosage: 300 MG, QD
     Route: 048
     Dates: start: 201308, end: 201404

REACTIONS (2)
  - Breast cancer [Not Recovered/Not Resolved]
  - Bronchial carcinoma [Not Recovered/Not Resolved]

NARRATIVE: CASE EVENT DATE: 2014
